FAERS Safety Report 5897563-6 (Version None)
Quarter: 2008Q3

REPORT INFORMATION
  Report Type: 
  Country: None (occurrence: None)
  Receive Date: 20080829
  Receipt Date: 20070925
  Transmission Date: 20090109
  Serious: Yes (Hospitalization)
  Sender: FDA-Public Use
  Company Number: 018839

PATIENT
  Age: 16 Year
  Sex: Female

DRUGS (1)
  1. PLAN B [Suspect]
     Dosage: 1 TABLET, Q12HR, ORAL
     Route: 048
     Dates: start: 20040101

REACTIONS (2)
  - ABDOMINAL PAIN [None]
  - VOMITING [None]
